FAERS Safety Report 23220377 (Version 1)
Quarter: 2023Q4

REPORT INFORMATION
  Report Type: Spontaneous
  Country: FR (occurrence: FR)
  Receive Date: 20231123
  Receipt Date: 20231123
  Transmission Date: 20240110
  Serious: Yes (Other)
  Sender: FDA-Public Use
  Company Number: FR-ALKEM LABORATORIES LIMITED-US-ALKEM-2023-13766

PATIENT

DRUGS (3)
  1. LEVETIRACETAM [Suspect]
     Active Substance: LEVETIRACETAM
     Indication: Product used for unknown indication
     Dosage: UNK
     Route: 063
  2. PHENYTOIN [Suspect]
     Active Substance: PHENYTOIN
     Indication: Product used for unknown indication
     Dosage: UNK
     Route: 063
  3. VALPROIC ACID [Suspect]
     Active Substance: VALPROIC ACID
     Indication: Product used for unknown indication
     Dosage: UNK
     Route: 063

REACTIONS (3)
  - Hypotonia neonatal [Unknown]
  - Poor sucking reflex [Unknown]
  - Exposure via breast milk [Unknown]
